FAERS Safety Report 5309427-7 (Version None)
Quarter: 2007Q2

REPORT INFORMATION
  Report Type: 
  Country: None (occurrence: None)
  Receive Date: 20070427
  Receipt Date: 20070420
  Transmission Date: 20071010
  Serious: Yes (Hospitalization)
  Sender: FDA-Public Use
  Company Number: AU-NOVOPROD-260270

PATIENT
  Sex: Male

DRUGS (1)
  1. NOVORAPID PENFILL [Suspect]
     Indication: DRUG USE FOR UNKNOWN INDICATION

REACTIONS (3)
  - BLOOD GLUCOSE ABNORMAL [None]
  - DEVICE LEAKAGE [None]
  - PNEUMONIA VIRAL [None]
